FAERS Safety Report 9984333 (Version 1)
Quarter: 2014Q1

REPORT INFORMATION
  Report Type: Spontaneous
  Country: US (occurrence: ES)
  Receive Date: 20140307
  Receipt Date: 20140307
  Transmission Date: 20141002
  Serious: Yes (Hospitalization)
  Sender: FDA-Public Use
  Company Number: ES-FRI-1000060362

PATIENT
  Age: 61 Year
  Sex: Female
  Weight: 74 kg

DRUGS (5)
  1. ROFLUMILAST [Suspect]
     Indication: CHRONIC OBSTRUCTIVE PULMONARY DISEASE
     Dosage: 500 MCG
     Route: 048
     Dates: start: 20130630
  2. FORMODUAL [Concomitant]
     Dates: start: 20130630
  3. VENTOLIN [Concomitant]
     Dates: start: 20130630
  4. ATROVENT [Concomitant]
     Dates: start: 20130630
  5. FLUMIL FORTE [Concomitant]
     Dates: start: 20130630

REACTIONS (2)
  - Fall [Recovered/Resolved]
  - Nasopharyngitis [Unknown]
